FAERS Safety Report 7301456-7 (Version None)
Quarter: 2011Q1

REPORT INFORMATION
  Report Type: 
  Country: None (occurrence: None)
  Receive Date: 20110113
  Receipt Date: 20101119
  Transmission Date: 20110831
  Serious: No
  Sender: FDA-Public Use
  Company Number: US-001401

PATIENT
  Sex: Female
  Weight: 58 kg

DRUGS (2)
  1. AMINO ACIDS [Concomitant]
  2. KUVAN [Suspect]
     Indication: PHENYLKETONURIA
     Dosage: 1200 MG QD ORAL
     Route: 048
     Dates: start: 20080901

REACTIONS (1)
  - AMINO ACID LEVEL DECREASED [None]
